FAERS Safety Report 12975773 (Version 1)
Quarter: 2016Q4

REPORT INFORMATION
  Report Type: Report from Study
  Country: CA (occurrence: CA)
  Receive Date: 20161125
  Receipt Date: 20161125
  Transmission Date: 20170207
  Serious: Yes (Other)
  Sender: FDA-Public Use
  Company Number: CA-BRISTOL-MYERS SQUIBB COMPANY-BMS-2016-100124

PATIENT
  Age: 67 Year
  Sex: Female

DRUGS (1)
  1. NIVOLUMAB [Suspect]
     Active Substance: NIVOLUMAB
     Indication: PRODUCT USED FOR UNKNOWN INDICATION
     Dosage: 234 MG, Q2WK
     Route: 065

REACTIONS (6)
  - Diarrhoea [Recovered/Resolved]
  - Sinus congestion [Not Recovered/Not Resolved]
  - Headache [Recovering/Resolving]
  - Respiratory tract congestion [Recovering/Resolving]
  - Cough [Not Recovered/Not Resolved]
  - Fatigue [Recovering/Resolving]

NARRATIVE: CASE EVENT DATE: 20161026
